FAERS Safety Report 10921280 (Version 4)
Quarter: 2015Q3

REPORT INFORMATION
  Report Type: Report from Study
  Country: AU (occurrence: AU)
  Receive Date: 20150312
  Receipt Date: 20150903
  Transmission Date: 20151125
  Serious: Yes (Life-Threatening, Hospitalization)
  Sender: FDA-Public Use
  Company Number: 2014MPI01245

PATIENT

DRUGS (1)
  1. BRENTUXIMAB VEDOTIN [Suspect]
     Active Substance: BRENTUXIMAB VEDOTIN
     Indication: MYCOSIS FUNGOIDES
     Dosage: 1.8 MG/KG, UNK
     Route: 042
     Dates: start: 20140630, end: 20140909

REACTIONS (8)
  - Drug eruption [Recovered/Resolved]
  - Tubulointerstitial nephritis [None]
  - Haemodialysis [None]
  - Acute kidney injury [None]
  - Staphylococcal infection [None]
  - General physical health deterioration [None]
  - Peripheral swelling [None]
  - Herpes simplex DNA test positive [None]

NARRATIVE: CASE EVENT DATE: 20140924
